FAERS Safety Report 10924552 (Version 2)
Quarter: 2015Q2

REPORT INFORMATION
  Report Type: Spontaneous
  Country: US (occurrence: US)
  Receive Date: 20150318
  Receipt Date: 20150524
  Transmission Date: 20150821
  Serious: No
  Sender: FDA-Public Use
  Company Number: US-JNJFOC-20141112111

PATIENT
  Sex: Female
  Weight: 136.08 kg

DRUGS (2)
  1. KETOCONAZOLE. [Suspect]
     Active Substance: KETOCONAZOLE
     Indication: ECZEMA
     Route: 061
     Dates: start: 2010, end: 20141113
  2. KETOCONAZOLE. [Suspect]
     Active Substance: KETOCONAZOLE
     Indication: SKIN EXFOLIATION
     Route: 061
     Dates: start: 2010, end: 20141113

REACTIONS (3)
  - Alopecia [Not Recovered/Not Resolved]
  - Skin lesion [Recovered/Resolved]
  - Erythema [Not Recovered/Not Resolved]
